FAERS Safety Report 22292911 (Version 2)
Quarter: 2023Q2

REPORT INFORMATION
  Report Type: Report from Study
  Country: FR (occurrence: None)
  Receive Date: 20230508
  Receipt Date: 20230616
  Transmission Date: 20230721
  Serious: Yes (Hospitalization)
  Sender: FDA-Public Use
  Company Number: FR-ROCHE-3345091

PATIENT
  Age: 74 Year

DRUGS (2)
  1. ATEZOLIZUMAB [Suspect]
     Active Substance: ATEZOLIZUMAB
     Indication: Bladder cancer
     Dosage: CUMALATIVE DOSE ATEZOLIZUMAB WAS 2400 MG ADMINISTERED ON 22/FEB/2023?LAST DOSE OF ATEZOLIZUMAB WAS A
     Route: 041
  2. BCG VACCINE [Suspect]
     Active Substance: BCG VACCINE
     Indication: Bladder cancer
     Dosage: CUMALATIVE DOSE  BCG THERAPY WAS 200 ML ADMINISTERED ON 22/FEB/2023?LAST DOSE OF BCG THERAPY WAS ADM
     Route: 043

REACTIONS (1)
  - Orchitis [Unknown]

NARRATIVE: CASE EVENT DATE: 20230417
